FAERS Safety Report 8171599-7 (Version None)
Quarter: 2012Q1

REPORT INFORMATION
  Report Type: 
  Country: None (occurrence: None)
  Receive Date: 20120228
  Receipt Date: 20120217
  Transmission Date: 20120608
  Serious: No
  Sender: FDA-Public Use
  Company Number: US-B.I. PHARMACEUTICALS,INC./RIDGEFIELD-2012-BP-03204BP

PATIENT
  Sex: Male

DRUGS (4)
  1. BISOPROLOL FUMARATE [Concomitant]
     Indication: HYPERTENSION
     Route: 048
     Dates: start: 20111201
  2. DIGOXIN [Concomitant]
     Route: 048
     Dates: start: 20111201
  3. EDARBI [Concomitant]
     Route: 048
     Dates: start: 20111201
  4. PRADAXA [Suspect]
     Indication: ATRIAL FIBRILLATION
     Dosage: 300 MG
     Route: 048
     Dates: start: 20120214

REACTIONS (2)
  - NAUSEA [None]
  - DECREASED APPETITE [None]
